FAERS Safety Report 15425080 (Version 1)
Quarter: 2018Q4

REPORT INFORMATION
  Report Type: Spontaneous
  Country: US (occurrence: US)
  Receive Date: 20180925
  Receipt Date: 20180925
  Transmission Date: 20190204
  Serious: No
  Sender: FDA-Public Use
  Company Number: US-THERAPEUTICSMD-2018TMD00008

PATIENT
  Age: 61 Year
  Sex: Female
  Weight: 99.77 kg

DRUGS (15)
  1. IMVEXXY [Suspect]
     Active Substance: ESTRADIOL
     Indication: VULVOVAGINAL DRYNESS
  2. METFORMIN [Concomitant]
     Active Substance: METFORMIN HYDROCHLORIDE
     Dosage: UNK, 2X/DAY
  3. FISH OIL [Concomitant]
     Active Substance: FISH OIL
  4. VENLAFAXINE ER [Concomitant]
     Active Substance: VENLAFAXINE HYDROCHLORIDE
  5. PROBIOTIC FOR FEMININE AND DIGESTIVE [Concomitant]
  6. LOSARTAN. [Concomitant]
     Active Substance: LOSARTAN
  7. XYZAL [Concomitant]
     Active Substance: LEVOCETIRIZINE DIHYDROCHLORIDE
  8. GLYBURIDE. [Concomitant]
     Active Substance: GLYBURIDE
  9. VITAMIN D [Concomitant]
     Active Substance: CHOLECALCIFEROL
  10. IMVEXXY [Suspect]
     Active Substance: ESTRADIOL
     Indication: HYSTERECTOMY
     Dosage: 10 ?G, 1X/DAY AT BEDTIME
     Route: 067
     Dates: start: 20180712, end: 20180719
  11. IMVEXXY [Suspect]
     Active Substance: ESTRADIOL
     Indication: OESTROGEN REPLACEMENT THERAPY
     Dosage: 10 ?G, 2X/WEEK
     Route: 067
     Dates: start: 20180722
  12. LEVOTHYROXINE. [Concomitant]
     Active Substance: LEVOTHYROXINE
  13. EZETIMIBE. [Concomitant]
     Active Substance: EZETIMIBE
  14. COQ10 [Concomitant]
     Active Substance: UBIDECARENONE
  15. ONE A DAY WOMEN OVER 50 [Concomitant]

REACTIONS (4)
  - Pruritus [Recovered/Resolved]
  - Headache [Recovered/Resolved]
  - Off label use [Not Recovered/Not Resolved]
  - Initial insomnia [Recovered/Resolved]

NARRATIVE: CASE EVENT DATE: 20180712
